FAERS Safety Report 25553736 (Version 1)
Quarter: 2025Q3

REPORT INFORMATION
  Report Type: Spontaneous
  Country: US (occurrence: US)
  Receive Date: 20250715
  Receipt Date: 20250715
  Transmission Date: 20251021
  Serious: No
  Sender: ROCHE
  Company Number: US-ROCHE-10000333510

PATIENT
  Age: 59 Year
  Sex: Male
  Weight: 136.08 kg

DRUGS (14)
  1. XOLAIR [Suspect]
     Active Substance: OMALIZUMAB
     Indication: Urticaria
     Dosage: TWO 150 MG PREFILLED SYRINGE, 2 OF 150MG PFS
     Route: 058
     Dates: start: 20211129
  2. XOLAIR [Suspect]
     Active Substance: OMALIZUMAB
  3. ALLEGRA [Concomitant]
     Active Substance: FEXOFENADINE HYDROCHLORIDE
  4. PANTOPRAZOLE [Concomitant]
     Active Substance: PANTOPRAZOLE
  5. PIROXICAM [Concomitant]
     Active Substance: PIROXICAM
  6. NEBIVOLOL [Concomitant]
     Active Substance: NEBIVOLOL
  7. ROSUVASTATIN [Concomitant]
     Active Substance: ROSUVASTATIN
  8. CHLORTHALIDONE [Concomitant]
     Active Substance: CHLORTHALIDONE
  9. TAMSULOSIN [Concomitant]
     Active Substance: TAMSULOSIN
  10. GABAPENTIN [Concomitant]
     Active Substance: GABAPENTIN
  11. ASPIRIN [Concomitant]
     Active Substance: ASPIRIN
  12. VITAMIN D3 [Concomitant]
     Active Substance: CHOLECALCIFEROL
  13. MAGNESIUM GLYCINATE [Concomitant]
     Active Substance: MAGNESIUM GLYCINATE
  14. FAMOTIDINE [Concomitant]
     Active Substance: FAMOTIDINE

REACTIONS (10)
  - Needle issue [Unknown]
  - Device issue [Unknown]
  - Product dose omission issue [Unknown]
  - Accidental exposure to product [Unknown]
  - Blood cholesterol increased [Recovered/Resolved]
  - Calcinosis [Unknown]
  - Blood glucose increased [Unknown]
  - Sleep apnoea syndrome [Unknown]
  - Respiratory disorder [Recovered/Resolved]
  - Snoring [Recovered/Resolved]

NARRATIVE: CASE EVENT DATE: 20240101
